FAERS Safety Report 6967823-6 (Version None)
Quarter: 2010Q3

REPORT INFORMATION
  Report Type: 
  Country: None (occurrence: None)
  Receive Date: 20100907
  Receipt Date: 20100629
  Transmission Date: 20110219
  Serious: No
  Sender: FDA-Public Use
  Company Number: A0787150A

PATIENT
  Sex: Male
  Weight: 95.9 kg

DRUGS (3)
  1. REQUIP [Suspect]
     Indication: RESTLESS LEGS SYNDROME
     Route: 048
     Dates: start: 20060501, end: 20070724
  2. PROTONIX [Concomitant]
  3. CELEXA [Concomitant]

REACTIONS (2)
  - COMPULSIVE SEXUAL BEHAVIOUR [None]
  - OBSESSIVE-COMPULSIVE DISORDER [None]
